FAERS Safety Report 9499894 (Version 1)
Quarter: 2013Q3

REPORT INFORMATION
  Report Type: Spontaneous
  Country: US (occurrence: None)
  Receive Date: 20130904
  Receipt Date: 20130904
  Transmission Date: 20140515
  Serious: Yes (Other)
  Sender: FDA-Public Use
  Company Number: None

PATIENT
  Age: 12 Year
  Sex: Male
  Weight: 48.99 kg

DRUGS (1)
  1. XOPENEX HFA [Suspect]
     Indication: ASTHMA
     Dosage: INHALATION 1 YR USED
     Route: 055

REACTIONS (3)
  - Headache [None]
  - Tachycardia [None]
  - Feeling jittery [None]
